FAERS Safety Report 17095375 (Version 2)
Quarter: 2020Q3

REPORT INFORMATION
  Report Type: Spontaneous
  Country: GB (occurrence: GB)
  Receive Date: 20191201
  Receipt Date: 20200423
  Transmission Date: 20201105
  Serious: Yes (Disabling)
  Sender: FDA-Public Use
  Company Number: GB-DEXPHARM-20191059

PATIENT
  Age: 76 Year
  Sex: Male

DRUGS (13)
  1. LANSOPRAZOLE. [Suspect]
     Active Substance: LANSOPRAZOLE
     Indication: PRODUCT USED FOR UNKNOWN INDICATION
     Route: 048
  2. AMLODIPINE [Suspect]
     Active Substance: AMLODIPINE BESYLATE
     Indication: PRODUCT USED FOR UNKNOWN INDICATION
     Route: 048
  3. APIXABAN [Suspect]
     Active Substance: APIXABAN
     Indication: ATRIAL FIBRILLATION
     Route: 048
  4. E45 [Suspect]
     Active Substance: LANOLIN\LIGHT MINERAL OIL\PARAFFIN
     Indication: PRODUCT USED FOR UNKNOWN INDICATION
     Route: 061
  5. SILDENAFIL CITRATE. [Suspect]
     Active Substance: SILDENAFIL CITRATE
     Indication: PULMONARY HYPERTENSION
     Route: 048
  6. BUMETANIDE. [Suspect]
     Active Substance: BUMETANIDE
     Indication: FLUID OVERLOAD
     Dosage: 2MG EACH MORNING AND 1MG BEFORE LUNCH
     Route: 048
  7. FERROUS SULFATE. [Suspect]
     Active Substance: FERROUS SULFATE
     Indication: HAEMOGLOBIN DECREASED
     Route: 048
  8. CARVEDILOL. [Suspect]
     Active Substance: CARVEDILOL
     Indication: EJECTION FRACTION DECREASED
     Route: 048
  9. SANDO K (POTASSIUM BICARBONATE\POTASSIUM CHLORIDE) [Suspect]
     Active Substance: POTASSIUM BICARBONATE\POTASSIUM CHLORIDE
     Indication: BLOOD POTASSIUM DECREASED
     Route: 048
  10. FERROUS SULFATE. [Suspect]
     Active Substance: FERROUS SULFATE
     Indication: HAEMOGLOBIN DECREASED
     Route: 048
  11. SPIRONOLACTONE. [Suspect]
     Active Substance: SPIRONOLACTONE
     Indication: EJECTION FRACTION DECREASED
     Route: 048
  12. DOXAZOSIN [Suspect]
     Active Substance: DOXAZOSIN MESYLATE
     Indication: HYPERTENSION
     Dosage: 4 MG, QD
     Route: 048
  13. ATORVASTATIN [Suspect]
     Active Substance: ATORVASTATIN
     Indication: PROPHYLAXIS
     Route: 048

REACTIONS (3)
  - Intentional device use issue [Unknown]
  - Rash [Not Recovered/Not Resolved]
  - Pain [Not Recovered/Not Resolved]

NARRATIVE: CASE EVENT DATE: 20190921
